FAERS Safety Report 9641165 (Version 1)
Quarter: 2013Q4

REPORT INFORMATION
  Report Type: Spontaneous
  Country: US (occurrence: US)
  Receive Date: 20131023
  Receipt Date: 20131023
  Transmission Date: 20140711
  Serious: Yes (Other)
  Sender: FDA-Public Use
  Company Number: US-PFIZER INC-2013300567

PATIENT
  Age: 35 Year
  Sex: Male
  Weight: 104 kg

DRUGS (4)
  1. LYRICA [Suspect]
     Indication: NERVE INJURY
     Dosage: UNK
     Dates: start: 2007
  2. VALIUM [Concomitant]
     Indication: ANXIETY
     Dosage: UNK
  3. VALIUM [Concomitant]
     Indication: MUSCLE SPASMS
  4. ELAVIL [Concomitant]
     Indication: NERVE INJURY
     Dosage: UNK

REACTIONS (1)
  - Ligament rupture [Not Recovered/Not Resolved]
